FAERS Safety Report 19998607 (Version 3)
Quarter: 2021Q4

REPORT INFORMATION
  Report Type: Report from Study
  Country: BR (occurrence: BR)
  Receive Date: 20211027
  Receipt Date: 20211112
  Transmission Date: 20220303
  Serious: Yes (Other)
  Sender: FDA-Public Use
  Company Number: BR-ABBVIE-21K-020-4133602-00

PATIENT
  Age: 68 Year
  Sex: Female
  Weight: 56 kg

DRUGS (11)
  1. RINVOQ [Suspect]
     Active Substance: UPADACITINIB
     Indication: Rheumatoid arthritis
     Route: 048
     Dates: start: 20211004, end: 20211006
  2. LOSARTAN [Concomitant]
     Active Substance: LOSARTAN
     Indication: Hypertension
     Route: 048
  3. LOSARTAN [Concomitant]
     Active Substance: LOSARTAN
     Dosage: TWICE A DAY IF SHE EXPERIENCES MALAISE
     Route: 048
  4. VITAMIN D3 [Concomitant]
     Active Substance: CHOLECALCIFEROL
     Indication: Vitamin supplementation
     Dosage: SACHET, MAGISTRAL FORMULATION
  5. MAGNESIUM [Concomitant]
     Active Substance: MAGNESIUM
     Indication: Vitamin supplementation
     Dosage: MAGISTRAL FORMULATION
  6. GLUTAMINE [Concomitant]
     Active Substance: GLUTAMINE
     Indication: Vitamin supplementation
     Dosage: MAGISTRAL FORMULATION
  7. COLLAGEN [Concomitant]
     Active Substance: COLLAGEN
     Indication: Vitamin supplementation
     Dosage: MAGISTRAL FORMULATION
  8. HERBALS\TURMERIC [Concomitant]
     Active Substance: HERBALS\TURMERIC
     Indication: Vitamin supplementation
     Dosage: MAGISTRAL FORMULATION
  9. ARTICHOKE [Concomitant]
     Active Substance: ARTICHOKE
     Indication: Vitamin supplementation
     Dosage: MAGISTRAL FORMULATION
  10. DIMETHYL SULFONE [Concomitant]
     Active Substance: DIMETHYL SULFONE
     Indication: Rheumatic disorder
     Route: 065
  11. SUCUPIRA [Concomitant]
     Indication: Vitamin supplementation

REACTIONS (2)
  - Hypertension [Recovered/Resolved]
  - Headache [Recovered/Resolved]

NARRATIVE: CASE EVENT DATE: 20211005
